FAERS Safety Report 17070765 (Version 1)
Quarter: 2019Q4

REPORT INFORMATION
  Report Type: Spontaneous
  Country: US (occurrence: US)
  Receive Date: 20191125
  Receipt Date: 20191125
  Transmission Date: 20200122
  Serious: No
  Sender: FDA-Public Use
  Company Number: US-TEVA-2019-US-1141161

PATIENT
  Sex: Female

DRUGS (1)
  1. ALPRAZOLAM 0.5MG [Suspect]
     Active Substance: ALPRAZOLAM

REACTIONS (4)
  - Diarrhoea [Unknown]
  - Feeling hot [Unknown]
  - Extrasystoles [Unknown]
  - Nausea [Unknown]
